FAERS Safety Report 6541014-5 (Version None)
Quarter: 2010Q1

REPORT INFORMATION
  Report Type: 
  Country: None (occurrence: None)
  Receive Date: 20100118
  Receipt Date: 20100104
  Transmission Date: 20100710
  Serious: Yes (Other)
  Sender: FDA-Public Use
  Company Number: CHPA2010DK01153

PATIENT
  Sex: Female

DRUGS (3)
  1. NICOTINELL COATED GUM FRUIT (NCH) [Suspect]
     Indication: SMOKING CESSATION THERAPY
     Dosage: 2 MG, 15-20 PIECES A DAY AND NOW 2-4 PER DAY
     Dates: start: 20080101
  2. NICOTINELL COATED GUM FRUIT (NCH) [Suspect]
     Dosage: 2 MG, 2-4 PIECES DAILY
  3. CHANTIX [Concomitant]

REACTIONS (2)
  - DRUG DEPENDENCE [None]
  - INTENTIONAL DRUG MISUSE [None]
